FAERS Safety Report 8825850 (Version 1)
Quarter: 2012Q4

REPORT INFORMATION
  Report Type: 
  Country: US (occurrence: US)
  Receive Date: 20121004
  Receipt Date: 20121004
  Transmission Date: 20130627
  Serious: No
  Sender: FDA-Public Use
  Company Number: US-009507513-1210USA000738

PATIENT
  Age: 71 Year
  Sex: Female

DRUGS (2)
  1. JANUVIA [Suspect]
  2. GLUCOPHAGE [Suspect]
     Dosage: 375 mg, UNK
     Route: 048

REACTIONS (1)
  - Diarrhoea [Unknown]
